FAERS Safety Report 10366136 (Version 1)
Quarter: 2014Q3

REPORT INFORMATION
  Report Type: Spontaneous
  Country: AT (occurrence: None)
  Receive Date: 20140804
  Receipt Date: 20140804
  Transmission Date: 20150326
  Serious: Yes (Hospitalization)
  Sender: FDA-Public Use
  Company Number: NGX_02521_2014

PATIENT
  Sex: Male

DRUGS (2)
  1. QUTENZA [Suspect]
     Active Substance: CAPSAICIN
     Indication: PRODUCT USED FOR UNKNOWN INDICATION
     Dosage: DF TRANSDERMAL
     Route: 062
     Dates: start: 20140703, end: 20140703
  2. SAROTEN [Concomitant]
     Active Substance: AMITRIPTYLINE

REACTIONS (1)
  - Burning sensation [None]

NARRATIVE: CASE EVENT DATE: 20140703
